FAERS Safety Report 12709233 (Version 1)
Quarter: 2016Q3

REPORT INFORMATION
  Report Type: Spontaneous
  Country: US (occurrence: None)
  Receive Date: 20160901
  Receipt Date: 20160901
  Transmission Date: 20161109
  Serious: Yes (Other)
  Sender: FDA-Public Use
  Company Number: None

PATIENT
  Age: 22 Year
  Sex: Female
  Weight: 74.84 kg

DRUGS (1)
  1. DEPO-PROVERA [Suspect]
     Active Substance: MEDROXYPROGESTERONE ACETATE
     Indication: CONTRACEPTION
     Dosage: ONCE EVERY 3 MONTH  INTO THE MUSCLE
     Route: 030
     Dates: start: 20091231, end: 20160831

REACTIONS (4)
  - Mood swings [None]
  - Arthralgia [None]
  - Joint swelling [None]
  - Headache [None]

NARRATIVE: CASE EVENT DATE: 20130801
